FAERS Safety Report 5281216-1 (Version None)
Quarter: 2007Q1

REPORT INFORMATION
  Report Type: 
  Country: None (occurrence: None)
  Receive Date: 20061220
  Receipt Date: 20050914
  Transmission Date: 20070707
  Serious: No
  Sender: FDA-Public Use
  Company Number: 2005131292

PATIENT
  Age: 83 Year
  Sex: Male
  Weight: 73.4827 kg

DRUGS (5)
  1. CARDURA [Suspect]
     Indication: NOCTURIA
     Dosage: 4 MG 1 D
     Dates: start: 20050101, end: 20050907
  2. DETROL LA [Suspect]
     Indication: NOCTURIA
     Dosage: 4 MG (4 MG, 1 IN 1 D), ORAL
     Route: 048
     Dates: start: 20050908
  3. TOPROL-XL [Concomitant]
  4. PROTONIX [Concomitant]
  5. WARFARIN SODIUM [Concomitant]

REACTIONS (3)
  - NOCTURIA [None]
  - THERAPEUTIC RESPONSE DECREASED [None]
  - URINE FLOW DECREASED [None]
